FAERS Safety Report 25254632 (Version 1)
Quarter: 2025Q2

REPORT INFORMATION
  Report Type: Spontaneous
  Country: US (occurrence: None)
  Receive Date: 20250429
  Receipt Date: 20250429
  Transmission Date: 20250717
  Serious: Yes (Death)
  Sender: FDA-CTU
  Company Number: None

PATIENT
  Age: 77 Year
  Sex: Male

DRUGS (1)
  1. TAGRISSO [Suspect]
     Active Substance: OSIMERTINIB
     Dosage: FREQUENCY : DAILY;?
     Route: 048
     Dates: start: 20221101, end: 20250429

REACTIONS (1)
  - Death [None]

NARRATIVE: CASE EVENT DATE: 20250429
